FAERS Safety Report 4996342-1 (Version None)
Quarter: 2006Q2

REPORT INFORMATION
  Report Type: 
  Country: None (occurrence: None)
  Receive Date: 20060509
  Receipt Date: 20060424
  Transmission Date: 20061013
  Serious: Yes (Death)
  Sender: FDA-Public Use
  Company Number: GBWYE572124APR06

PATIENT
  Age: 86 Year
  Sex: Female

DRUGS (7)
  1. ENBREL [Suspect]
     Indication: RHEUMATOID ARTHRITIS
     Dosage: 50 MG PER WEEK
     Route: 058
     Dates: start: 20050805, end: 20051025
  2. PREDNISOLONE [Concomitant]
     Indication: RHEUMATOID ARTHRITIS
     Dosage: 20 MG DAILY, DOSE WAS REDUCED
     Route: 048
     Dates: start: 20040101
  3. FUROSEMIDE [Concomitant]
     Indication: CARDIAC FAILURE
     Dosage: 30 MG DAILY
     Route: 048
     Dates: start: 19980101
  4. RALOXIFENE [Concomitant]
     Dosage: 60 MG DAILY
     Route: 048
  5. ACETYLSALICYLIC ACID SRT [Concomitant]
     Dosage: 75 MG DAILY
     Route: 048
     Dates: start: 19980101
  6. SIMVASTATIN [Concomitant]
     Dosage: 40 MG DAILY
     Route: 048
     Dates: start: 19980101
  7. METHOTREXATE [Concomitant]
     Route: 065
     Dates: start: 20050101

REACTIONS (2)
  - CONFUSIONAL STATE [None]
  - LYMPHOMA [None]
